FAERS Safety Report 12172742 (Version 4)
Quarter: 2017Q4

REPORT INFORMATION
  Report Type: Report from Study
  Country: US (occurrence: US)
  Receive Date: 20160311
  Receipt Date: 20171101
  Transmission Date: 20180320
  Serious: Yes (Other)
  Sender: FDA-Public Use
  Company Number: US-SA-2016SA047193

PATIENT
  Age: 54 Year
  Sex: Female

DRUGS (1)
  1. LEMTRADA [Suspect]
     Active Substance: ALEMTUZUMAB
     Indication: MULTIPLE SCLEROSIS
     Route: 041
     Dates: start: 20160222, end: 20160226

REACTIONS (24)
  - Choking [Not Recovered/Not Resolved]
  - Multiple sclerosis relapse [Not Recovered/Not Resolved]
  - Pain [Recovering/Resolving]
  - Limb discomfort [Not Recovered/Not Resolved]
  - Mean cell volume increased [Unknown]
  - Urine analysis abnormal [Unknown]
  - Hypoaesthesia [Unknown]
  - Urticaria [Unknown]
  - Mean cell haemoglobin increased [Unknown]
  - Lymphocyte count decreased [Unknown]
  - Pain in extremity [Not Recovered/Not Resolved]
  - Urine leukocyte esterase positive [Unknown]
  - Balance disorder [Unknown]
  - Insomnia [Not Recovered/Not Resolved]
  - CD4 lymphocytes decreased [Unknown]
  - Urine ketone body present [Unknown]
  - Nitrite urine present [Unknown]
  - Herpes zoster [Recovering/Resolving]
  - Throat irritation [Not Recovered/Not Resolved]
  - Facial pain [Unknown]
  - Cough [Not Recovered/Not Resolved]
  - Fall [Not Recovered/Not Resolved]
  - Muscle spasms [Unknown]
  - Crystal urine present [Unknown]

NARRATIVE: CASE EVENT DATE: 201602
